FAERS Safety Report 16540174 (Version 2)
Quarter: 2020Q4

REPORT INFORMATION
  Report Type: Spontaneous
  Country: IT (occurrence: IT)
  Receive Date: 20190708
  Receipt Date: 20201229
  Transmission Date: 20210113
  Serious: Yes (Hospitalization, Other)
  Sender: FDA-Public Use
  Company Number: IT-SA-2019SA180396

PATIENT

DRUGS (5)
  1. ALPRAZOLAM. [Suspect]
     Active Substance: ALPRAZOLAM
     Indication: PERSONALITY DISORDER
     Dosage: 37 DF, TOTAL
     Route: 048
     Dates: start: 20190206, end: 20190206
  2. DAPAROX [PAROXETINE MESILATE] [Suspect]
     Active Substance: PAROXETINE MESYLATE
     Indication: PERSONALITY DISORDER
     Dosage: 300 MG, TOTAL (15 DF)
     Route: 048
     Dates: start: 20190206, end: 20190206
  3. ALPRAZOLAM. [Suspect]
     Active Substance: ALPRAZOLAM
     Indication: PERSONALITY DISORDER
     Dosage: 8 MG, TOTAL (16 DF)
     Route: 048
     Dates: start: 20190206, end: 20190206
  4. STILNOX [Suspect]
     Active Substance: ZOLPIDEM TARTRATE
     Indication: PERSONALITY DISORDER
     Dosage: 300 MG, TOTAL (30 DF)
     Route: 048
     Dates: start: 20190206, end: 20190206
  5. VENLAFAXINE HYDROCHLORIDE. [Suspect]
     Active Substance: VENLAFAXINE HYDROCHLORIDE
     Indication: PERSONALITY DISORDER
     Dosage: 2.1 G, TOTAL (28 DF)
     Route: 048
     Dates: start: 20190206, end: 20190206

REACTIONS (7)
  - Drug abuse [Unknown]
  - Suicide attempt [Recovering/Resolving]
  - Gait disturbance [Recovered/Resolved]
  - Mydriasis [Recovering/Resolving]
  - Disorientation [Recovered/Resolved]
  - Bradyphrenia [Recovered/Resolved]
  - Intentional overdose [Unknown]

NARRATIVE: CASE EVENT DATE: 20190206
